FAERS Safety Report 9767656 (Version 5)
Quarter: 2014Q1

REPORT INFORMATION
  Report Type: Spontaneous
  Country: JP (occurrence: JP)
  Receive Date: 20131217
  Receipt Date: 20140213
  Transmission Date: 20141002
  Serious: Yes (Hospitalization, Other)
  Sender: FDA-Public Use
  Company Number: JP-B.I. PHARMACEUTICALS,INC./RIDGEFIELD-2013-BI-42295GD

PATIENT
  Age: 91 Year
  Sex: Female
  Weight: 32 kg

DRUGS (9)
  1. PRADAXA [Suspect]
     Indication: ATRIAL FIBRILLATION
     Dosage: 110 MG
     Route: 048
     Dates: start: 20130122
  2. BAYASPIRIN [Suspect]
     Indication: PRODUCT USED FOR UNKNOWN INDICATION
     Dosage: 100 MG
     Route: 048
     Dates: start: 2012, end: 20130522
  3. ARTIST [Concomitant]
     Indication: CARDIAC FAILURE CHRONIC
     Dosage: 2.5 MG
     Route: 048
     Dates: start: 2012, end: 201305
  4. NEUROVITAN [Concomitant]
     Dosage: 3DF
     Route: 048
     Dates: start: 2012, end: 201306
  5. LASIX [Concomitant]
     Indication: CARDIAC FAILURE CHRONIC
     Dosage: 20 MG
     Route: 048
     Dates: start: 2012
  6. ALDACTONE A [Concomitant]
     Indication: CARDIAC FAILURE CHRONIC
     Dosage: 25 MG
     Route: 048
     Dates: start: 2012
  7. TAKEPRON [Concomitant]
     Indication: ANTIPLATELET THERAPY
     Dosage: 15 MG
     Route: 065
     Dates: start: 2012
  8. OPTIRAN [Concomitant]
     Dosage: 30 MCG
     Route: 065
     Dates: start: 2012
  9. CELECOX [Concomitant]
     Dosage: 200 MG
     Route: 065
     Dates: start: 2012, end: 201308

REACTIONS (5)
  - Atrial thrombosis [Recovered/Resolved]
  - Faeces discoloured [Recovered/Resolved]
  - Anaemia [Recovered/Resolved]
  - Drug effect incomplete [Unknown]
  - Off label use [Unknown]
